FAERS Safety Report 21919001 (Version 1)
Quarter: 2023Q1

REPORT INFORMATION
  Report Type: Spontaneous
  Country: US (occurrence: None)
  Receive Date: 20230126
  Receipt Date: 20230126
  Transmission Date: 20230418
  Serious: No
  Sender: FDA-Public Use
  Company Number: None

PATIENT
  Sex: Male

DRUGS (1)
  1. OPSUMIT [Suspect]
     Active Substance: MACITENTAN
     Indication: Pulmonary arterial hypertension
     Dosage: FREQUENCY : DAILY;?
     Route: 048
     Dates: start: 202203

REACTIONS (8)
  - Injection site pain [None]
  - Amnesia [None]
  - Fatigue [None]
  - Diarrhoea [None]
  - Nausea [None]
  - Bone pain [None]
  - Pain in extremity [None]
  - Headache [None]
